FAERS Safety Report 7746547-1 (Version None)
Quarter: 2011Q3

REPORT INFORMATION
  Report Type: 
  Country: None (occurrence: None)
  Receive Date: 20110913
  Receipt Date: 20110906
  Transmission Date: 20111222
  Serious: Yes (Other)
  Sender: FDA-Public Use
  Company Number: GB-ABBOTT-11P-167-0852099-00

PATIENT
  Sex: Female

DRUGS (1)
  1. HUMIRA [Suspect]
     Indication: PSORIATIC ARTHROPATHY
     Route: 058
     Dates: start: 20101201

REACTIONS (7)
  - ORAL PAIN [None]
  - DIARRHOEA [None]
  - INFECTION [None]
  - GINGIVITIS [None]
  - ABDOMINAL PAIN UPPER [None]
  - URINARY TRACT INFECTION [None]
  - NAUSEA [None]
